FAERS Safety Report 4986341-8 (Version None)
Quarter: 2006Q2

REPORT INFORMATION
  Report Type: 
  Country: None (occurrence: None)
  Receive Date: 20060428
  Receipt Date: 20060206
  Transmission Date: 20061013
  Serious: Yes (Death, Hospitalization)
  Sender: FDA-Public Use
  Company Number: US-GLAXOSMITHKLINE-A0592528A

PATIENT
  Age: 65 Year
  Sex: Male

DRUGS (1)
  1. PAXIL [Suspect]
     Indication: DEPRESSION
     Dosage: 20MG TWICE PER DAY
     Route: 048
     Dates: start: 20020121

REACTIONS (5)
  - COMPLETED SUICIDE [None]
  - DEPRESSION [None]
  - GUN SHOT WOUND [None]
  - HEAD INJURY [None]
  - SUICIDAL IDEATION [None]
